FAERS Safety Report 23543879 (Version 1)
Quarter: 2024Q1

REPORT INFORMATION
  Report Type: Spontaneous
  Country: JP (occurrence: JP)
  Receive Date: 20240220
  Receipt Date: 20240220
  Transmission Date: 20240410
  Serious: Yes (Life-Threatening, Hospitalization, Other)
  Sender: FDA-Public Use
  Company Number: JP-MLMSERVICE-20240206-4818335-1

PATIENT
  Age: 93 Year
  Sex: Male

DRUGS (6)
  1. LANSOPRAZOLE [Suspect]
     Active Substance: LANSOPRAZOLE
     Indication: Product used for unknown indication
     Dosage: 15 MG, QD
     Route: 065
  2. CLOPIDOGREL [Suspect]
     Active Substance: CLOPIDOGREL BISULFATE
     Indication: Antiplatelet therapy
     Dosage: REINTRODUCED AT A REDUCED DOSAGE
     Route: 065
  3. ELOBIXIBAT [Suspect]
     Active Substance: ELOBIXIBAT
     Indication: Constipation
     Dosage: UNK
     Route: 065
  4. HERBALS [Suspect]
     Active Substance: HERBALS
     Indication: Pneumonia aspiration
     Dosage: 5 G, QD
     Route: 065
  5. SULBACTAM, AMPICILLIN [Concomitant]
     Indication: Pneumonia aspiration
     Route: 040
  6. ROSUVASTATIN [Concomitant]
     Active Substance: ROSUVASTATIN
     Indication: Product used for unknown indication
     Route: 065

REACTIONS (1)
  - Agranulocytosis [Recovered/Resolved]
